FAERS Safety Report 8922905 (Version 2)
Quarter: 2013Q1

REPORT INFORMATION
  Report Type: Report from Study
  Country: BE (occurrence: BE)
  Receive Date: 20121125
  Receipt Date: 20130104
  Transmission Date: 20140127
  Serious: Yes (Death, Hospitalization)
  Sender: FDA-Public Use
  Company Number: BE-CELGENEUS-013-50794-12112183

PATIENT
  Age: 70 Year
  Sex: Male
  Weight: 83 kg

DRUGS (6)
  1. VIDAZA [Suspect]
     Indication: MYELODYSPLASTIC SYNDROME
     Dosage: 150 MILLIGRAM
     Route: 065
     Dates: start: 20121015, end: 20121019
  2. ONDASETRON [Concomitant]
     Indication: ANTIEMETIC SUPPORTIVE CARE
     Route: 065
     Dates: start: 20121015, end: 20121019
  3. RED BLOOD CELLS [Concomitant]
     Indication: PRODUCT USED FOR UNKNOWN INDICATION
     Route: 065
     Dates: start: 20121017, end: 20121017
  4. RED BLOOD CELLS [Concomitant]
     Route: 065
     Dates: start: 20121103, end: 20121104
  5. RED BLOOD CELLS [Concomitant]
     Route: 065
     Dates: start: 20121109, end: 20121110
  6. MEDROL [Concomitant]
     Indication: PRODUCT USED FOR UNKNOWN INDICATION
     Route: 065
     Dates: start: 20121015

REACTIONS (2)
  - Myelodysplastic syndrome [Fatal]
  - Haemorrhage [Recovered/Resolved]
